FAERS Safety Report 4733549-2 (Version None)
Quarter: 2005Q3

REPORT INFORMATION
  Report Type: 
  Country: None (occurrence: None)
  Receive Date: 20050729
  Receipt Date: 20050519
  Transmission Date: 20060218
  Serious: No
  Sender: FDA-Public Use
  Company Number: COT_0073_2005

PATIENT
  Age: 43 Year
  Sex: Female
  Weight: 48.0813 kg

DRUGS (2)
  1. VENTAVIS [Suspect]
     Indication: PULMONARY HYPERTENSION
     Dosage: 2.5 MCG Q4HR IH
     Route: 055
  2. REMODULIN [Concomitant]

REACTIONS (1)
  - DIZZINESS [None]
